FAERS Safety Report 5757282-3 (Version None)
Quarter: 2008Q2

REPORT INFORMATION
  Report Type: 
  Country: None (occurrence: None)
  Receive Date: 20080603
  Receipt Date: 20080527
  Transmission Date: 20081010
  Serious: Yes (Other)
  Sender: FDA-Public Use
  Company Number: US-ASTRAZENECA-2008UW10711

PATIENT
  Age: 9 Year
  Sex: Male
  Weight: 47.6 kg

DRUGS (2)
  1. SEROQUEL [Suspect]
     Indication: PSYCHOMOTOR HYPERACTIVITY
     Route: 048
  2. TRILEPTA [Concomitant]

REACTIONS (2)
  - CONVULSION [None]
  - NEUTROPHIL COUNT DECREASED [None]
